FAERS Safety Report 16904255 (Version 1)
Quarter: 2020Q3

REPORT INFORMATION
  Report Type: Spontaneous
  Country: US (occurrence: US)
  Receive Date: 20190819
  Receipt Date: 20190819
  Transmission Date: 20201104
  Serious: No
  Sender: FDA-Public Use
  Company Number: None

PATIENT
  Age: 71 Year
  Sex: Female

DRUGS (1)
  1. NETARSUDIL. [Suspect]
     Active Substance: NETARSUDIL
     Indication: GLAUCOMA
     Route: 047
     Dates: start: 20190619, end: 20190808

REACTIONS (5)
  - Vision blurred [None]
  - Eye pain [None]
  - Eye irritation [None]
  - Ocular hyperaemia [None]
  - Visual impairment [None]

NARRATIVE: CASE EVENT DATE: 20190815
